FAERS Safety Report 4567275-X (Version None)
Quarter: 2005Q1

REPORT INFORMATION
  Report Type: 
  Country: None (occurrence: None)
  Receive Date: 20050127
  Receipt Date: 20050117
  Transmission Date: 20050727
  Serious: Yes (Hospitalization, Other)
  Sender: FDA-Public Use
  Company Number: 200510255BCC

PATIENT
  Age: 15 Year
  Sex: Female
  Weight: 54.4316 kg

DRUGS (1)
  1. ALEVE [Suspect]
     Indication: DEPRESSION
     Dosage: 4840 MG, ONCE, ORAL
     Route: 048
     Dates: start: 20050117

REACTIONS (5)
  - DYSPNOEA [None]
  - EPIGASTRIC DISCOMFORT [None]
  - HYPERVENTILATION [None]
  - OVERDOSE [None]
  - TREMOR [None]
